FAERS Safety Report 7655551-3 (Version None)
Quarter: 2011Q3

REPORT INFORMATION
  Report Type: 
  Country: None (occurrence: None)
  Receive Date: 20110801
  Receipt Date: 20110714
  Transmission Date: 20111222
  Serious: Yes (Hospitalization, Other)
  Sender: FDA-Public Use
  Company Number: IMP_05410_2011

PATIENT
  Age: 11 Month
  Sex: Male
  Weight: 12 kg

DRUGS (1)
  1. BUPROPION HCL [Suspect]
     Indication: PRODUCT USED FOR UNKNOWN INDICATION
     Dosage: ONCE

REACTIONS (23)
  - ACCIDENTAL DRUG INTAKE BY CHILD [None]
  - ACCIDENTAL OVERDOSE [None]
  - ELECTROENCEPHALOGRAM ABNORMAL [None]
  - LUNG INFILTRATION [None]
  - BALANCE DISORDER [None]
  - ASPIRATION [None]
  - PUPILLARY REFLEX IMPAIRED [None]
  - POSTURE ABNORMAL [None]
  - POOR PERIPHERAL CIRCULATION [None]
  - RESPIRATORY DISTRESS [None]
  - HYPOTENSION [None]
  - MEDICATION RESIDUE [None]
  - VOMITING [None]
  - SINUS TACHYCARDIA [None]
  - PUPIL FIXED [None]
  - HYPERGLYCAEMIA [None]
  - RESPIRATORY FAILURE [None]
  - VENTRICULAR TACHYCARDIA [None]
  - UNRESPONSIVE TO STIMULI [None]
  - METABOLIC ACIDOSIS [None]
  - GRAND MAL CONVULSION [None]
  - BLOOD PRESSURE SYSTOLIC INCREASED [None]
  - VENTRICULAR EXTRASYSTOLES [None]
